FAERS Safety Report 5516818-8 (Version None)
Quarter: 2007Q4

REPORT INFORMATION
  Report Type: 
  Country: None (occurrence: None)
  Receive Date: 20071114
  Receipt Date: 20071108
  Transmission Date: 20080405
  Serious: Yes (Death)
  Sender: FDA-Public Use
  Company Number: JP-AVENTIS-200712970JP

PATIENT
  Age: 70 Year
  Sex: Male
  Weight: 42.4 kg

DRUGS (5)
  1. TAXOTERE [Suspect]
     Indication: OESOPHAGEAL SQUAMOUS CELL CARCINOMA RECURRENT
     Dosage: DOSE: 65 MG
     Route: 041
     Dates: start: 20050914, end: 20060728
  2. KYTRIL                             /01178101/ [Concomitant]
     Indication: PREMEDICATION
     Dosage: DOSE: 3 MG
     Dates: start: 20050914, end: 20060728
  3. GRAN [Concomitant]
     Dosage: DOSE: 75 MG
  4. LOXONIN                            /00890701/ [Concomitant]
     Indication: PAIN
     Dosage: DOSE: 60 MG
  5. FAMOTIDINE [Concomitant]
     Indication: HYPERCHLORHYDRIA
     Dosage: DOSE: 20 MG

REACTIONS (1)
  - INTERSTITIAL LUNG DISEASE [None]
